FAERS Safety Report 6739715-9 (Version None)
Quarter: 2010Q2

REPORT INFORMATION
  Report Type: 
  Country: None (occurrence: None)
  Receive Date: 20100525
  Receipt Date: 20100518
  Transmission Date: 20101027
  Serious: Yes (Other)
  Sender: FDA-Public Use
  Company Number: BR-ROCHE-704455

PATIENT
  Sex: Female
  Weight: 60 kg

DRUGS (2)
  1. ROACUTAN [Suspect]
     Indication: ACNE
     Route: 048
     Dates: start: 20100401, end: 20100517
  2. ROACUTAN [Suspect]
     Dosage: DOSE INCREASED
     Route: 048
     Dates: start: 20100518

REACTIONS (1)
  - GALACTORRHOEA [None]
